FAERS Safety Report 7590803-7 (Version None)
Quarter: 2011Q3

REPORT INFORMATION
  Report Type: 
  Country: None (occurrence: None)
  Receive Date: 20110705
  Receipt Date: 20110629
  Transmission Date: 20111222
  Serious: Yes (Other)
  Sender: FDA-Public Use
  Company Number: US-PFIZER INC-2011115525

PATIENT
  Sex: Female
  Weight: 81.6 kg

DRUGS (9)
  1. ATENOLOL [Concomitant]
     Indication: HYPERTENSION
     Dosage: UNK
  2. CRESTOR [Concomitant]
     Indication: BLOOD CHOLESTEROL INCREASED
     Dosage: UNK
  3. LYRICA [Suspect]
     Dosage: 75 MG, 2X/DAY
     Dates: start: 20110404
  4. HYDROCHLOROTHIAZIDE [Concomitant]
     Indication: HYPERTENSION
     Dosage: UNK
  5. LYRICA [Suspect]
     Dosage: 50 MG AND 75 MG AT THE BED TIME
     Dates: start: 20110420
  6. IMITREX [Concomitant]
     Indication: MIGRAINE
     Dosage: UNK
  7. LYRICA [Suspect]
     Indication: BACK PAIN
     Dosage: 50 MG, 2X/DAY
     Route: 048
     Dates: start: 20110322
  8. LYRICA [Suspect]
     Dosage: 50 MG, 3X/DAY
     Dates: start: 20110425
  9. IMITREX [Concomitant]
     Indication: HEADACHE

REACTIONS (13)
  - NEUROMA [None]
  - MOOD ALTERED [None]
  - SWELLING FACE [None]
  - PAIN [None]
  - SWELLING [None]
  - SEDATION [None]
  - AMNESIA [None]
  - DIZZINESS [None]
  - CONFUSIONAL STATE [None]
  - HEADACHE [None]
  - TREMOR [None]
  - AGITATION [None]
  - DRUG INTOLERANCE [None]
